FAERS Safety Report 4658139-1 (Version None)
Quarter: 2005Q2

REPORT INFORMATION
  Report Type: 
  Country: None (occurrence: None)
  Receive Date: 20050509
  Receipt Date: 20050429
  Transmission Date: 20051028
  Serious: Yes (Hospitalization, Other)
  Sender: FDA-Public Use
  Company Number: 2003119654

PATIENT
  Age: 72 Year
  Sex: Female
  Weight: 90.7194 kg

DRUGS (26)
  1. LIPITOR [Suspect]
     Indication: BLOOD CHOLESTEROL
     Dosage: 10 MG, ORAL
     Route: 048
     Dates: start: 20030901, end: 20040327
  2. ZOLOFT [Suspect]
     Indication: FIBROMYALGIA
     Dosage: 50 MG (1 IN 1 D), ORAL
     Route: 048
     Dates: start: 20040101
  3. ZOLOFT [Suspect]
     Indication: SERUM SEROTONIN INCREASED
     Dosage: 50 MG (1 IN 1 D), ORAL
     Route: 048
     Dates: start: 20040101
  4. CELEBREX [Suspect]
     Indication: ARTHRITIS
  5. CELEBREX [Suspect]
     Indication: FIBROMYALGIA
  6. EZETIMIBE (EZETIMIBE) [Suspect]
     Indication: ILL-DEFINED DISORDER
  7. LIDOCAINE [Suspect]
     Indication: ENDODONTIC PROCEDURE
  8. ACETAMINOPHEN [Concomitant]
  9. ATENOLOL [Concomitant]
  10. DILTIAZEM HYDROCHLORIDE [Concomitant]
  11. DYAZIDE (HYDROCHLOROTHIAZIDE) [Concomitant]
  12. CLONAZEPAM [Concomitant]
  13. VITAMINS (VITAMINS) [Concomitant]
  14. CALCIUM (CALCIUM) [Concomitant]
  15. TOCOPHEROL (TOCOPHEROL) [Concomitant]
  16. FLUTICASONE PROPIONATE [Concomitant]
  17. LORATADINE [Concomitant]
  18. ACETAMINOPHEN [Concomitant]
  19. IBUPROFEN [Concomitant]
  20. ASPIRIN [Concomitant]
  21. ALL OTHER THERAPEUTIC PRODUCTS (ALL OTHER THERAPEUTIC PRODUCTS) [Concomitant]
  22. ZINC (ZINC) [Concomitant]
  23. OTHER ANTIHYPERTENSIVES (OTHER ANTIHYPERTENSIVES) [Concomitant]
  24. DRUG, UNSPECIFIED (DRUG, UNSPECIFIED) [Concomitant]
  25. WARFARIN SODIUM [Concomitant]
  26. FEXOFENADINE HYDROCHLORIDE [Concomitant]

REACTIONS (15)
  - ASTHENIA [None]
  - ATRIAL FIBRILLATION [None]
  - CONDITION AGGRAVATED [None]
  - CRYING [None]
  - DIZZINESS [None]
  - DRUG INEFFECTIVE [None]
  - DYSPNOEA [None]
  - FEELING ABNORMAL [None]
  - HERNIA [None]
  - LOGORRHOEA [None]
  - MUSCLE SWELLING [None]
  - SLEEP DISORDER [None]
  - SYNCOPE [None]
  - THERMAL BURN [None]
  - WEIGHT FLUCTUATION [None]
